FAERS Safety Report 6967351-8 (Version None)
Quarter: 2010Q3

REPORT INFORMATION
  Report Type: 
  Country: None (occurrence: None)
  Receive Date: 20100907
  Receipt Date: 20100826
  Transmission Date: 20110219
  Serious: Yes (Hospitalization, Other)
  Sender: FDA-Public Use
  Company Number: BR-ASTRAZENECA-2010SE40448

PATIENT
  Age: 61 Year
  Sex: Male
  Weight: 71 kg

DRUGS (4)
  1. SELOZOK [Suspect]
     Indication: HYPERTENSION
     Route: 048
     Dates: start: 20060101
  2. CRESTOR [Suspect]
     Indication: BLOOD CHOLESTEROL ABNORMAL
     Route: 048
     Dates: start: 20090101
  3. ARADOIS [Concomitant]
     Route: 048
     Dates: start: 20060101
  4. BUFFERIN CARDIO [Concomitant]
     Route: 048
     Dates: start: 20060101

REACTIONS (2)
  - MYOCARDIAL INFARCTION [None]
  - MYOCARDIAL ISCHAEMIA [None]
